FAERS Safety Report 8935596 (Version 1)
Quarter: 2012Q4

REPORT INFORMATION
  Report Type: 
  Country: US (occurrence: US)
  Receive Date: 20121130
  Receipt Date: 20121130
  Transmission Date: 20130627
  Serious: Yes (Hospitalization, Congenital Anomaly, Other)
  Sender: FDA-Public Use
  Company Number: US-PFIZER INC-2012297471

PATIENT
  Sex: Male
  Weight: 4 kg

DRUGS (3)
  1. ZOLOFT [Suspect]
     Dosage: UNK
     Route: 064
  2. PROCARDIA [Concomitant]
     Dosage: 20 mg, every 6 hours
     Route: 064
  3. PRENATAL VITAMINS [Concomitant]
     Dosage: UNK
     Route: 064

REACTIONS (5)
  - Maternal exposure timing unspecified [Unknown]
  - Exomphalos [Unknown]
  - Patent ductus arteriosus [Unknown]
  - Cardiomegaly [Unknown]
  - Atrial septal defect [Unknown]
